FAERS Safety Report 7954898-0 (Version None)
Quarter: 2011Q4

REPORT INFORMATION
  Report Type: 
  Country: None (occurrence: None)
  Receive Date: 20111202
  Receipt Date: 20111122
  Transmission Date: 20120403
  Serious: Yes (Hospitalization, Other)
  Sender: FDA-Public Use
  Company Number: US-ELI_LILLY_AND_COMPANY-US201111008293

PATIENT
  Sex: Female
  Weight: 75.465 kg

DRUGS (9)
  1. PRASUGREL HYDROCHLORIDE [Suspect]
     Indication: ACUTE CORONARY SYNDROME
     Dosage: 60 MG, SINGLE
     Dates: start: 20100816, end: 20100816
  2. ASPIRIN [Concomitant]
     Dosage: 81 MG, QD
     Route: 048
     Dates: start: 20100823, end: 20111116
  3. ATENOLOL [Concomitant]
     Indication: HYPERTENSION
     Dosage: 100 MG, QD
     Route: 048
  4. ASPIRIN [Concomitant]
     Indication: CORONARY ARTERY DISEASE
     Dosage: 325 MG, QD
     Route: 048
     Dates: end: 20110823
  5. ASPIRIN [Concomitant]
     Dosage: UNK
     Dates: start: 20111117
  6. CRESTOR [Concomitant]
     Indication: DYSLIPIDAEMIA
     Dosage: 20 MG, QD
     Route: 048
     Dates: start: 20110207
  7. CLOPIDOGREL [Concomitant]
     Indication: ANTIPLATELET THERAPY
     Dosage: 75 MG, QD
     Route: 048
     Dates: start: 20110729, end: 20111116
  8. PRASUGREL HYDROCHLORIDE [Suspect]
     Dosage: 10 MG, QD
     Dates: start: 20100817, end: 20110729
  9. CLOPIDOGREL [Concomitant]
     Dosage: UNK
     Dates: start: 20111121

REACTIONS (3)
  - GASTRITIS [None]
  - UPPER GASTROINTESTINAL HAEMORRHAGE [None]
  - PEPTIC ULCER [None]
